FAERS Safety Report 6550953-0 (Version None)
Quarter: 2010Q1

REPORT INFORMATION
  Report Type: 
  Country: None (occurrence: None)
  Receive Date: 20100125
  Receipt Date: 20100113
  Transmission Date: 20100710
  Serious: Yes (Other)
  Sender: FDA-Public Use
  Company Number: BR-PFIZER INC-2010004895

PATIENT
  Sex: Female

DRUGS (2)
  1. CELEBRA [Suspect]
     Indication: TENDONITIS
     Dosage: 2 CAPSULES, 1X/DAY
     Route: 048
  2. CELEBRA [Suspect]
     Indication: BURSITIS
     Dosage: 1 CAPSULE, 2X/DAY
     Route: 048

REACTIONS (7)
  - EYE SWELLING [None]
  - HYPERSENSITIVITY [None]
  - MALAISE [None]
  - NAUSEA [None]
  - OEDEMA MOUTH [None]
  - THROAT TIGHTNESS [None]
  - VOMITING [None]
